FAERS Safety Report 17562183 (Version 1)
Quarter: 2020Q1

REPORT INFORMATION
  Report Type: Report from Study
  Country: None (occurrence: DE)
  Receive Date: 20200319
  Receipt Date: 20200319
  Transmission Date: 20200409
  Serious: Yes (Hospitalization)
  Sender: FDA-Public Use
  Company Number: DE-ABBVIE-20K-062-3316616-00

PATIENT
  Age: 33 Year
  Sex: Male
  Weight: 154 kg

DRUGS (14)
  1. PROCORALAN [Concomitant]
     Active Substance: IVABRADINE
     Route: 048
     Dates: start: 20170516
  2. INFLIXIMAB [Concomitant]
     Active Substance: INFLIXIMAB
     Indication: COLITIS ULCERATIVE
     Route: 042
     Dates: start: 20170908, end: 20181001
  3. HUMIRA [Suspect]
     Active Substance: ADALIMUMAB
     Indication: COLITIS ULCERATIVE
     Route: 058
     Dates: start: 20160425, end: 201701
  4. INFLIXIMAB [Concomitant]
     Active Substance: INFLIXIMAB
     Route: 042
     Dates: start: 20181119
  5. LIBROLOG [Concomitant]
     Indication: DIABETES MELLITUS
     Route: 058
     Dates: start: 201909
  6. PANTOPRAZOL [Concomitant]
     Active Substance: PANTOPRAZOLE SODIUM
     Indication: PROPHYLAXIS
     Route: 048
     Dates: start: 20161220
  7. METFORMIN [Concomitant]
     Active Substance: METFORMIN HYDROCHLORIDE
     Indication: DIABETES MELLITUS
     Route: 048
     Dates: start: 201810, end: 20190412
  8. ABASAGLAR [Concomitant]
     Active Substance: INSULIN GLARGINE
     Indication: DIABETES MELLITUS
     Route: 058
     Dates: start: 201909
  9. VALSARTAN. [Concomitant]
     Active Substance: VALSARTAN
     Indication: TACHYCARDIA PAROXYSMAL
     Route: 048
     Dates: start: 20160116
  10. ALLOPURINOL. [Concomitant]
     Active Substance: ALLOPURINOL
     Indication: BLOOD URIC ACID INCREASED
     Route: 048
     Dates: start: 20161220
  11. EPLERENON BETA [Concomitant]
     Indication: CARDIAC FAILURE
     Route: 048
     Dates: start: 20161121
  12. BISOPROLOL [Concomitant]
     Active Substance: BISOPROLOL
     Indication: TACHYCARDIA PAROXYSMAL
     Route: 048
     Dates: start: 20160116
  13. PROCORALAN [Concomitant]
     Active Substance: IVABRADINE
     Indication: HEART RATE INCREASED
     Route: 048
     Dates: start: 20161104, end: 20170515
  14. METFORMIN [Concomitant]
     Active Substance: METFORMIN HYDROCHLORIDE
     Route: 048
     Dates: start: 20190413

REACTIONS (1)
  - Hepatic rupture [Recovered/Resolved]

NARRATIVE: CASE EVENT DATE: 20191105
